FAERS Safety Report 12263586 (Version 2)
Quarter: 2016Q2

REPORT INFORMATION
  Report Type: Spontaneous
  Country: US (occurrence: US)
  Receive Date: 20160413
  Receipt Date: 20160527
  Transmission Date: 20160815
  Serious: Yes (Other)
  Sender: FDA-Public Use
  Company Number: US-ASTRAZENECA-2016SE36905

PATIENT
  Age: 24621 Day
  Sex: Female
  Weight: 79.4 kg

DRUGS (2)
  1. SYMBICORT [Suspect]
     Active Substance: BUDESONIDE\FORMOTEROL FUMARATE DIHYDRATE
     Indication: CHRONIC OBSTRUCTIVE PULMONARY DISEASE
     Dosage: 160/4.5 MCG, 2 PUFFS, TWO TIMES A DAY
     Route: 055
  2. VENTOLIN [Concomitant]
     Active Substance: ALBUTEROL SULFATE
     Indication: INHALATION THERAPY
     Dosage: 1 PUFF EVERY 4 TO 6 HOURS AS NEEDED
     Route: 055

REACTIONS (7)
  - Drug dose omission [Unknown]
  - Wheezing [Unknown]
  - Product quality issue [Unknown]
  - Dyspnoea [Unknown]
  - Intentional product misuse [Unknown]
  - Obesity [Unknown]
  - Cough [Unknown]

NARRATIVE: CASE EVENT DATE: 20160229
